FAERS Safety Report 25311251 (Version 1)
Quarter: 2025Q2

REPORT INFORMATION
  Report Type: Other
  Country: US (occurrence: US)
  Receive Date: 20250514
  Receipt Date: 20250514
  Transmission Date: 20250717
  Serious: Yes (Death)
  Sender: ALVOGEN
  Company Number: US-ALVOGEN-2025097948

PATIENT
  Age: 26 Year
  Sex: Male

DRUGS (2)
  1. DOXORUBICIN [Suspect]
     Active Substance: DOXORUBICIN
     Indication: Synovial sarcoma
  2. IFOSFAMIDE [Suspect]
     Active Substance: IFOSFAMIDE
     Indication: Synovial sarcoma

REACTIONS (2)
  - Toxicity to various agents [Fatal]
  - Adverse event [Fatal]
